FAERS Safety Report 9257840 (Version 1)
Quarter: 2013Q1

REPORT INFORMATION
  Report Type: Spontaneous
  Country: US (occurrence: None)
  Receive Date: 20121212
  Receipt Date: 20121212
  Transmission Date: 20140127
  Serious: No
  Sender: FDA-Public Use
  Company Number: 1208USA010103

PATIENT
  Age: 58 Year
  Sex: Male

DRUGS (4)
  1. PEGINTRON [Suspect]
     Indication: HEPATITIS C
     Dates: start: 20120305
  2. REBETOL [Suspect]
     Indication: HEPATITIS C
     Dates: start: 20120305
  3. VICTRELIS [Suspect]
     Indication: HEPATITIS C
     Dates: start: 20120408
  4. LISINOPRIL (LISINOPRIL) [Concomitant]

REACTIONS (3)
  - Blood uric acid increased [None]
  - Fatigue [None]
  - Haemoglobin decreased [None]
